FAERS Safety Report 13070772 (Version 3)
Quarter: 2017Q1

REPORT INFORMATION
  Report Type: Spontaneous
  Country: US (occurrence: US)
  Receive Date: 20161229
  Receipt Date: 20170329
  Transmission Date: 20170428
  Serious: Yes (Hospitalization, Other)
  Sender: FDA-Public Use
  Company Number: US-009507513-1612USA013858

PATIENT
  Age: 10 Day
  Sex: Female

DRUGS (2)
  1. EMTRICITABINE (+) TENOFOVIR ALAFENAMIDE FUMARATE [Suspect]
     Active Substance: EMTRICITABINE\TENOFOVIR ALAFENAMIDE FUMARATE
     Route: 064
  2. ISENTRESS [Suspect]
     Active Substance: RALTEGRAVIR POTASSIUM
     Route: 064

REACTIONS (2)
  - Adrenal insufficiency neonatal [Recovered/Resolved]
  - Foetal exposure during pregnancy [Recovered/Resolved]
